FAERS Safety Report 8328983-8 (Version None)
Quarter: 2012Q2

REPORT INFORMATION
  Report Type: 
  Country: None (occurrence: None)
  Receive Date: 20120502
  Receipt Date: 20120420
  Transmission Date: 20120825
  Serious: Yes (Other)
  Sender: FDA-Public Use
  Company Number: US-PFIZER INC-2012055687

PATIENT
  Sex: Female

DRUGS (3)
  1. MS CONTIN [Suspect]
     Indication: PRODUCT USED FOR UNKNOWN INDICATION
     Dosage: 100 MG, 3X/DAY
     Route: 065
  2. OXYCONTIN [Suspect]
     Dosage: 160 MG, DAILY
  3. OXYCONTIN [Suspect]
     Indication: PRODUCT USED FOR UNKNOWN INDICATION
     Dosage: 80 MG, 2X/DAY
     Route: 048

REACTIONS (6)
  - INADEQUATE ANALGESIA [None]
  - CHEST PAIN [None]
  - HYPERSENSITIVITY [None]
  - ABDOMINAL DISCOMFORT [None]
  - MYOCARDIAL INFARCTION [None]
  - INTENTIONAL DRUG MISUSE [None]
